FAERS Safety Report 9235083 (Version 1)
Quarter: 2013Q2

REPORT INFORMATION
  Report Type: Spontaneous
  Country: US (occurrence: US)
  Receive Date: 20130416
  Receipt Date: 20130416
  Transmission Date: 20140414
  Serious: Yes (Other)
  Sender: FDA-Public Use
  Company Number: CHPA2013US006253

PATIENT
  Age: 80 Year
  Sex: Female

DRUGS (6)
  1. EXCEDRIN EXTRA STRENGTH [Suspect]
     Indication: HEADACHE
     Dosage: 2 DF, QD
     Route: 048
  2. EXCEDRIN EXTRA STRENGTH [Suspect]
     Indication: ARTHRITIS
  3. EXCEDRIN EXTRA STRENGTH [Suspect]
     Indication: HEADACHE
     Dosage: 2 DF, QD
     Route: 048
  4. EXCEDRIN EXTRA STRENGTH [Suspect]
     Indication: ARTHRITIS
  5. EXCEDRIN EXTRA STRENGTH [Suspect]
     Indication: HEADACHE
     Dosage: 2 DF, QD
     Route: 048
  6. EXCEDRIN EXTRA STRENGTH [Suspect]
     Indication: ARTHRITIS

REACTIONS (2)
  - Diabetes mellitus [Not Recovered/Not Resolved]
  - Incorrect drug administration duration [Unknown]
